FAERS Safety Report 13523430 (Version 1)
Quarter: 2017Q2

REPORT INFORMATION
  Report Type: Spontaneous
  Country: US (occurrence: US)
  Receive Date: 20170508
  Receipt Date: 20170508
  Transmission Date: 20170830
  Serious: No
  Sender: FDA-Public Use
  Company Number: US-VIFOR (INTERNATIONAL) INC.-VIT-2017-03489

PATIENT

DRUGS (5)
  1. VELTASSA [Suspect]
     Active Substance: PATIROMER
     Indication: HYPERKALAEMIA
     Route: 048
     Dates: start: 20160722
  2. CELECOXIB. [Concomitant]
     Active Substance: CELECOXIB
  3. CILOSTAZOL. [Concomitant]
     Active Substance: CILOSTAZOL
  4. LANTUS [Concomitant]
     Active Substance: INSULIN GLARGINE
  5. LOSARTAN POTASSIUM. [Concomitant]
     Active Substance: LOSARTAN POTASSIUM

REACTIONS (3)
  - Memory impairment [Unknown]
  - Pain [Unknown]
  - Drug dose omission [Unknown]
